FAERS Safety Report 4920828-9 (Version None)
Quarter: 2006Q1

REPORT INFORMATION
  Report Type: 
  Country: None (occurrence: None)
  Receive Date: 20060113
  Receipt Date: 20051012
  Transmission Date: 20060701
  Serious: No
  Sender: FDA-Public Use
  Company Number: 2005SP002977

PATIENT
  Age: 86 Year
  Sex: Female
  Weight: 63.5036 kg

DRUGS (7)
  1. LUNESTA [Suspect]
     Dosage: 1.5 MG;HS;ORAL
     Route: 048
     Dates: start: 20050701, end: 20050101
  2. TENORMIN [Concomitant]
  3. LOZOL [Concomitant]
  4. SYNTHROID [Concomitant]
  5. ATIVAN [Concomitant]
  6. POTASSIUM CHLORIDE [Concomitant]
  7. VALSARTAN [Concomitant]

REACTIONS (2)
  - EUPHORIC MOOD [None]
  - PARADOXICAL DRUG REACTION [None]
